FAERS Safety Report 12829069 (Version 1)
Quarter: 2016Q4

REPORT INFORMATION
  Report Type: Spontaneous
  Country: US (occurrence: US)
  Receive Date: 20161007
  Receipt Date: 20161007
  Transmission Date: 20170207
  Serious: No
  Sender: FDA-Public Use
  Company Number: US-SA-2016SA044966

PATIENT
  Age: 53 Year
  Sex: Female

DRUGS (3)
  1. HYDROCHLOROTHIAZIDE/TRIAMTERENE [Concomitant]
  2. POTASSIUM [Concomitant]
     Active Substance: POTASSIUM
  3. AUBAGIO [Suspect]
     Active Substance: TERIFLUNOMIDE
     Indication: MULTIPLE SCLEROSIS
     Route: 048
     Dates: start: 20160225, end: 20160301

REACTIONS (4)
  - Nausea [Unknown]
  - Feeling abnormal [Unknown]
  - Heart rate increased [Unknown]
  - Fatigue [Unknown]

NARRATIVE: CASE EVENT DATE: 20160226
